FAERS Safety Report 10737427 (Version 1)
Quarter: 2015Q1

REPORT INFORMATION
  Report Type: Spontaneous
  Country: US (occurrence: None)
  Receive Date: 20150122
  Receipt Date: 20150122
  Transmission Date: 20150721
  Serious: Yes (Other)
  Sender: FDA-Public Use
  Company Number: None

PATIENT
  Age: 39 Year

DRUGS (2)
  1. ALBUTEROL/IPRATROPIUM BROMIDE [Suspect]
     Active Substance: ALBUTEROL\IPRATROPIUM BROMIDE
     Indication: CHRONIC OBSTRUCTIVE PULMONARY DISEASE
     Dosage: 3 SPRAYS PLUS AS NEEDED, ONE YEAR
     Route: 055
     Dates: start: 20130523, end: 20150109
  2. ALBUTEROL/IPRATROPIUM BROMIDE [Suspect]
     Active Substance: ALBUTEROL\IPRATROPIUM BROMIDE
     Indication: ASTHMA
     Dosage: 3 SPRAYS PLUS AS NEEDED, ONE YEAR
     Route: 055
     Dates: start: 20130523, end: 20150109

REACTIONS (3)
  - Dyspnoea [None]
  - Drug ineffective [None]
  - Product container issue [None]

NARRATIVE: CASE EVENT DATE: 20150115
